FAERS Safety Report 8092234-2 (Version None)
Quarter: 2012Q1

REPORT INFORMATION
  Report Type: 
  Country: None (occurrence: None)
  Receive Date: 20120129
  Receipt Date: 20111103
  Transmission Date: 20120608
  Serious: No
  Sender: FDA-Public Use
  Company Number: US-ABBOTT-11P-163-0871674-00

PATIENT
  Sex: Female
  Weight: 47.216 kg

DRUGS (2)
  1. ARAVA [Concomitant]
     Indication: JUVENILE ARTHRITIS
  2. HUMIRA [Suspect]
     Indication: JUVENILE ARTHRITIS
     Dates: start: 20111101

REACTIONS (1)
  - INJECTION SITE PAIN [None]
